FAERS Safety Report 17117228 (Version 1)
Quarter: 2019Q4

REPORT INFORMATION
  Report Type: Spontaneous
  Country: IE (occurrence: IE)
  Receive Date: 20191205
  Receipt Date: 20191205
  Transmission Date: 20200122
  Serious: Yes (Hospitalization)
  Sender: FDA-Public Use
  Company Number: IE-BECTON DICKINSON-2019BDN00399

PATIENT
  Age: 26 Year
  Sex: Female

DRUGS (6)
  1. CHLORAPREP [Suspect]
     Active Substance: CHLORHEXIDINE GLUCONATE\ISOPROPYL ALCOHOL
     Indication: INFECTION PROPHYLAXIS
     Dosage: UNK, ONCE
     Route: 061
     Dates: start: 2018, end: 2018
  2. LEVOBUPIVACAINE [Concomitant]
     Active Substance: LEVOBUPIVACAINE
     Dosage: ^LOADING DOSE^, ONCE
     Route: 065
  3. LEVOBUPIVACAINE [Concomitant]
     Active Substance: LEVOBUPIVACAINE
     Dosage: ^TEST DOSE^, ONCE
     Route: 065
  4. UNSPECIFIED ANTIBIOTIC PROPHYLAXIS [Concomitant]
     Route: 065
  5. LIDOCAINE. [Concomitant]
     Active Substance: LIDOCAINE
     Dosage: SQ TISSUES AT THE NEEDLE-ENTRY SITE PARAMEDIAN TO THE L3-4 INTERVERTEBRAL SPACE WERE INFILTRATED
     Route: 058
  6. UNSPECIFIED EPIDURAL [Concomitant]
     Route: 065

REACTIONS (1)
  - Soft tissue inflammation [Recovered/Resolved]
